FAERS Safety Report 10544252 (Version 1)
Quarter: 2014Q4

REPORT INFORMATION
  Report Type: Spontaneous
  Country: US (occurrence: None)
  Receive Date: 20141010
  Receipt Date: 20141010
  Transmission Date: 20150529
  Serious: No
  Sender: FDA-Public Use
  Company Number: 163-POMAL-14071686

PATIENT
  Age: 82 Year
  Sex: Female
  Weight: 52.16 kg

DRUGS (13)
  1. SPIRONOLACTONE (SPIRONOLACTONE) [Concomitant]
     Active Substance: SPIRONOLACTONE
  2. DEXAMETHASONE (DEXAMETHASONE) [Concomitant]
     Active Substance: DEXAMETHASONE
  3. ECOTRIN [Concomitant]
     Active Substance: ASPIRIN
  4. MULTIVITAMINS (MULTIVITAMINS) [Concomitant]
     Active Substance: VITAMINS
  5. POMALYST [Suspect]
     Active Substance: POMALIDOMIDE
     Indication: PLASMA CELL MYELOMA
     Dosage: 4 MG, 21 IN 21 D, PO
     Route: 048
     Dates: start: 20140331
  6. PROPAFENONE (PROAFENONE) [Concomitant]
  7. CALCIUM CARBONATE (CALCIUM CARBONATE) [Concomitant]
  8. CALCIUM + VITAMIN D (LEKOVIT CA) [Concomitant]
     Active Substance: CALCIUM\VITAMIN D
  9. DIGOX [Concomitant]
     Active Substance: DIGOXIN
  10. POTASSIUM GLUCONATE (POTASSIUM GLUCONATE) UNKNOWN [Concomitant]
     Active Substance: POTASSIUM GLUCONATE
  11. VALACYCLOVIR (VALACIVILOVIR  HYDROCHLORIDE)) [Concomitant]
  12. MAGNESIUM  (MAGNESIUM) [Concomitant]
     Active Substance: MAGNESIUM
  13. WARFARIN (WARFARIN) [Concomitant]
     Active Substance: WARFARIN

REACTIONS (1)
  - Seasonal allergy [None]

NARRATIVE: CASE EVENT DATE: 201407
